FAERS Safety Report 6094191-7 (Version None)
Quarter: 2009Q1

REPORT INFORMATION
  Report Type: 
  Country: None (occurrence: None)
  Receive Date: 20090226
  Receipt Date: 20090223
  Transmission Date: 20090719
  Serious: Yes (Hospitalization)
  Sender: FDA-Public Use
  Company Number: US-BRISTOL-MYERS SQUIBB COMPANY-14518112

PATIENT
  Age: 82 Year
  Sex: Female
  Weight: 51 kg

DRUGS (21)
  1. PACLITAXEL [Suspect]
     Indication: NON-SMALL CELL LUNG CANCER
     Route: 042
     Dates: start: 20081124, end: 20090126
  2. CETUXIMAB [Suspect]
     Indication: NON-SMALL CELL LUNG CANCER
     Route: 042
     Dates: start: 20081124, end: 20090126
  3. CARBOPLATIN [Suspect]
     Indication: NON-SMALL CELL LUNG CANCER
     Route: 042
     Dates: start: 20081124, end: 20090126
  4. BEVACIZUMAB [Suspect]
     Indication: NON-SMALL CELL LUNG CANCER
     Dosage: 08DEC08-12JAN09. 750MG
     Route: 042
     Dates: start: 20081208, end: 20090112
  5. DILTIAZEM CD [Concomitant]
     Indication: HYPERTENSION
     Route: 065
  6. DIGOXIN [Concomitant]
     Indication: ARRHYTHMIA
     Route: 065
  7. FOSAMAX [Concomitant]
     Indication: OSTEOPOROSIS
     Route: 065
  8. FLONASE [Concomitant]
     Indication: CHRONIC OBSTRUCTIVE PULMONARY DISEASE
     Route: 065
  9. ZANTAC [Concomitant]
     Indication: GASTROOESOPHAGEAL REFLUX DISEASE
     Route: 065
  10. ASPIRIN [Concomitant]
     Indication: THROMBOSIS
     Route: 065
  11. CENTRUM SILVER [Concomitant]
     Indication: VITAMIN SUPPLEMENTATION
     Route: 065
  12. CALCIUM [Concomitant]
     Indication: VITAMIN SUPPLEMENTATION
     Route: 065
  13. VITAMIN D [Concomitant]
     Indication: VITAMIN SUPPLEMENTATION
     Route: 065
  14. ASCORBIC ACID [Concomitant]
     Indication: VITAMIN SUPPLEMENTATION
     Route: 065
  15. FLAXSEED OIL [Concomitant]
     Indication: VITAMIN SUPPLEMENTATION
     Route: 065
  16. IRON [Concomitant]
     Indication: ANAEMIA
     Route: 065
  17. ZOCOR [Concomitant]
     Indication: HYPERLIPIDAEMIA
     Route: 065
  18. TOPROL-XL [Concomitant]
     Indication: HYPERTENSION
     Route: 065
  19. PERCOCET [Concomitant]
     Indication: PAIN
     Route: 065
  20. METAMUCIL [Concomitant]
     Indication: CONSTIPATION
     Dosage: GIVEN ON 15DEC08.
     Route: 065
     Dates: start: 20081124
  21. NEULASTA [Concomitant]
     Indication: NEUTROPENIA
     Dosage: GIVEN ON 27JAN09-27JAN09.
     Route: 065
     Dates: start: 20090107, end: 20090107

REACTIONS (1)
  - CHEST PAIN [None]
